FAERS Safety Report 9302742 (Version 2)
Quarter: 2013Q3

REPORT INFORMATION
  Report Type: Report from Study
  Country: CA (occurrence: None)
  Receive Date: 20130516
  Receipt Date: 20130830
  Transmission Date: 20140515
  Serious: Yes (Hospitalization, Other)
  Sender: FDA-Public Use
  Company Number: 2013AP005180

PATIENT
  Age: 42 Year
  Sex: Female
  Weight: 50 kg

DRUGS (6)
  1. FERRIPROX [Suspect]
     Indication: HAEMOCHROMATOSIS
     Route: 048
     Dates: start: 1995, end: 20120828
  2. FERRIPROX [Suspect]
     Indication: THALASSAEMIA BETA
     Route: 048
     Dates: start: 1995, end: 20120828
  3. LANTUS/01483501 [Concomitant]
  4. NOVORAPID [Concomitant]
  5. VITAMIN D/00107901 [Concomitant]
  6. FOLIC ACID [Concomitant]

REACTIONS (7)
  - Agranulocytosis [None]
  - Mononeuropathy multiplex [None]
  - Skin ulcer [None]
  - Hypersensitivity vasculitis [None]
  - Neuropathy peripheral [None]
  - Nerve compression [None]
  - Synovial cyst [None]
